FAERS Safety Report 10530120 (Version 1)
Quarter: 2014Q4

REPORT INFORMATION
  Report Type: Spontaneous
  Country: US (occurrence: US)
  Receive Date: 20141021
  Receipt Date: 20141021
  Transmission Date: 20150528
  Serious: No
  Sender: FDA-Public Use
  Company Number: US-PFIZER INC-2014284556

PATIENT
  Sex: Male

DRUGS (6)
  1. PROPANOLOL [Concomitant]
     Active Substance: PROPRANOLOL HYDROCHLORIDE
     Dosage: UNK (AT NIGHT)
  2. OMEGA 3 [Concomitant]
     Active Substance: OMEGA-3 FATTY ACIDS
     Dosage: UNK, (IN THE MORNING)
  3. BIOTIN [Concomitant]
     Active Substance: BIOTIN
     Dosage: UNK (IN THE MORNING)
  4. COENZYME Q10 [Concomitant]
     Active Substance: UBIDECARENONE
     Dosage: UNK (IN THE MORNING)
  5. NORPACE [Suspect]
     Active Substance: DISOPYRAMIDE PHOSPHATE
     Dosage: UNK, (MORNING AND EVENING DOSE)
  6. ASPIRIN. [Concomitant]
     Active Substance: ASPIRIN
     Dosage: UNK (IN THE MORNING)

REACTIONS (3)
  - Abdominal discomfort [Unknown]
  - Micturition disorder [Unknown]
  - Abdominal pain upper [Unknown]
